FAERS Safety Report 18140698 (Version 1)
Quarter: 2020Q3

REPORT INFORMATION
  Report Type: Spontaneous
  Country: US (occurrence: US)
  Receive Date: 20200812
  Receipt Date: 20200812
  Transmission Date: 20201103
  Serious: No
  Sender: FDA-Public Use
  Company Number: US-BAYER-2020-166862

PATIENT
  Sex: Female

DRUGS (1)
  1. MIRALAX [Suspect]
     Active Substance: POLYETHYLENE GLYCOL 3350
     Indication: GENERAL PHYSICAL HEALTH DETERIORATION
     Dosage: UNK UNK, QD
     Route: 048

REACTIONS (2)
  - Product storage error [None]
  - Product use in unapproved indication [Unknown]
